FAERS Safety Report 4546382-1 (Version None)
Quarter: 2005Q1

REPORT INFORMATION
  Report Type: 
  Country: None (occurrence: None)
  Receive Date: 20050103
  Receipt Date: 20041209
  Transmission Date: 20050727
  Serious: Yes (Death, Hospitalization)
  Sender: FDA-Public Use
  Company Number: GBS041015677

PATIENT
  Age: 49 Year
  Sex: Male
  Weight: 95 kg

DRUGS (10)
  1. XIGRIS [Suspect]
     Indication: SEPSIS
     Dosage: 24 UG/KG/HR
     Dates: start: 20040921, end: 20040924
  2. ENOXAPARIN SODIUM [Concomitant]
  3. NORADRENALINE [Concomitant]
  4. DOPEXAMINE [Concomitant]
  5. PROPOFOL [Concomitant]
  6. ALFENTANIL [Concomitant]
  7. ACTRAPID (INSULIN) [Concomitant]
  8. MEROPENEM [Concomitant]
  9. HYDROCORTISONE [Concomitant]
  10. TAZOCIN [Concomitant]

REACTIONS (13)
  - BONE DISORDER [None]
  - BRAIN DEATH [None]
  - BRAIN OEDEMA [None]
  - HAEMODIALYSIS [None]
  - HAEMORRHAGE INTRACRANIAL [None]
  - HYPERGLYCAEMIA [None]
  - MYDRIASIS [None]
  - PANCREATIC NECROSIS [None]
  - PROTHROMBIN TIME PROLONGED [None]
  - SINUS DISORDER [None]
  - SKIN DISORDER [None]
  - SUBARACHNOID HAEMORRHAGE [None]
  - SWELLING FACE [None]
